FAERS Safety Report 24640463 (Version 2)
Quarter: 2024Q4

REPORT INFORMATION
  Report Type: Spontaneous
  Country: FR (occurrence: FR)
  Receive Date: 20241120
  Receipt Date: 20241120
  Transmission Date: 20250115
  Serious: Yes (Hospitalization, Other)
  Sender: ALEXION PHARMACEUTICALS
  Company Number: None

PATIENT
  Age: 20 Year
  Weight: 80 kg

DRUGS (23)
  1. QUETIAPINE [Suspect]
     Active Substance: QUETIAPINE
     Dosage: LP 300MG
  2. QUETIAPINE [Suspect]
     Active Substance: QUETIAPINE
     Dosage: LP 300MG
  3. QUETIAPINE [Suspect]
     Active Substance: QUETIAPINE
     Dosage: LP 300MG
  4. QUETIAPINE [Suspect]
     Active Substance: QUETIAPINE
     Dosage: LP 300MG
  5. QUETIAPINE [Suspect]
     Active Substance: QUETIAPINE
     Dosage: LP 300MG
  6. QUETIAPINE [Suspect]
     Active Substance: QUETIAPINE
     Dosage: LP 300MG
  7. QUETIAPINE [Suspect]
     Active Substance: QUETIAPINE
     Dosage: LP 300MG
  8. QUETIAPINE [Suspect]
     Active Substance: QUETIAPINE
     Dosage: LP 300MG
  9. DIAZEPAM [Suspect]
     Active Substance: DIAZEPAM
     Indication: Toxicity to various agents
     Dosage: 5MG
  10. DIAZEPAM [Suspect]
     Active Substance: DIAZEPAM
     Dosage: 5MG
  11. ALPRAZOLAM [Suspect]
     Active Substance: ALPRAZOLAM
     Indication: Toxicity to various agents
     Dosage: 0,5MG
  12. ALPRAZOLAM [Suspect]
     Active Substance: ALPRAZOLAM
     Dosage: 0,5MG
  13. ALPRAZOLAM [Suspect]
     Active Substance: ALPRAZOLAM
     Dosage: 0,5MG
  14. ALPRAZOLAM [Suspect]
     Active Substance: ALPRAZOLAM
     Dosage: 0,5MG
  15. TOUJEO [Concomitant]
     Active Substance: INSULIN GLARGINE
  16. TOUJEO [Concomitant]
     Active Substance: INSULIN GLARGINE
     Route: 065
  17. LEVOMEPROMAZINE [Concomitant]
     Active Substance: LEVOMEPROMAZINE
  18. LEVOMEPROMAZINE [Concomitant]
     Active Substance: LEVOMEPROMAZINE
     Route: 065
  19. VENLAFAXINE [Concomitant]
     Active Substance: VENLAFAXINE HYDROCHLORIDE
  20. VENLAFAXINE [Concomitant]
     Active Substance: VENLAFAXINE HYDROCHLORIDE
     Route: 065
  21. ZOPICLONE [Concomitant]
     Active Substance: ZOPICLONE
  22. ZOPICLONE [Concomitant]
     Active Substance: ZOPICLONE
     Route: 065
  23. NOVORAPID [Concomitant]
     Active Substance: INSULIN ASPART

REACTIONS (14)
  - Toxicity to various agents [Recovered/Resolved]
  - Strabismus [Recovered/Resolved]
  - Coma [Recovered/Resolved]
  - Generalised tonic-clonic seizure [Unknown]
  - Blood glucose increased [Recovered/Resolved]
  - Muscle spasms [Unknown]
  - Vomiting [Unknown]
  - Rhabdomyolysis [Recovering/Resolving]
  - Metabolic acidosis [Unknown]
  - Cell death [Unknown]
  - Somnolence [Recovering/Resolving]
  - Agitation [Unknown]
  - Pyrexia [Unknown]
  - Pneumonia aspiration [Recovered/Resolved]
